FAERS Safety Report 7780588-3 (Version None)
Quarter: 2011Q3

REPORT INFORMATION
  Report Type: 
  Country: None (occurrence: None)
  Receive Date: 20110927
  Receipt Date: 20110405
  Transmission Date: 20111222
  Serious: No
  Sender: FDA-Public Use
  Company Number: M079520

PATIENT
  Age: 66 Year
  Sex: Female
  Weight: 68 kg

DRUGS (8)
  1. AVALIDE [Suspect]
     Dates: start: 20100301
  2. ALENDRONATE SODIUM [Concomitant]
     Indication: OSTEOPOROSIS
  3. VITAMIN D [Concomitant]
  4. HYDROCHLOROTHIAZIDE [Suspect]
     Dates: start: 20110101
  5. CALCIUM CARBONATE [Concomitant]
  6. AVAPRO [Suspect]
     Indication: HYPERTENSION
     Dosage: INITIALLY 150MG/DAY AND RESTARTED IN 2009 JAN11:300MG
     Route: 048
  7. PRAVACHOL [Suspect]
  8. LIVALO [Concomitant]
     Indication: BLOOD CHOLESTEROL

REACTIONS (2)
  - DRUG INEFFECTIVE [None]
  - CHEST PAIN [None]
